FAERS Safety Report 21387071 (Version 1)
Quarter: 2022Q3

REPORT INFORMATION
  Report Type: Spontaneous
  Country: US (occurrence: None)
  Receive Date: 20220928
  Receipt Date: 20220928
  Transmission Date: 20221027
  Serious: Yes (Hospitalization)
  Sender: FDA-Public Use
  Company Number: 2022A324729

PATIENT
  Age: 704 Month
  Sex: Male
  Weight: 86.2 kg

DRUGS (2)
  1. PULMICORT FLEXHALER [Suspect]
     Active Substance: BUDESONIDE
     Indication: Asthma
     Route: 055
     Dates: start: 20220905
  2. BREZTRI [Suspect]
     Active Substance: BUDESONIDE\FORMOTEROL\GLYCOPYRROLATE
     Indication: Asthma
     Dosage: 160/9/4.8MCG 2 PUFFS TWICE A DAY
     Route: 055
     Dates: start: 202204, end: 20220904

REACTIONS (7)
  - Gastrointestinal ulcer [Recovering/Resolving]
  - Abdominal pain [Unknown]
  - Nausea [Unknown]
  - Diarrhoea [Recovering/Resolving]
  - Dyspepsia [Unknown]
  - Constipation [Unknown]
  - Insurance issue [Unknown]

NARRATIVE: CASE EVENT DATE: 20220901
